FAERS Safety Report 11253058 (Version 1)
Quarter: 2015Q3

REPORT INFORMATION
  Report Type: Spontaneous
  Country: SE (occurrence: SE)
  Receive Date: 20150709
  Receipt Date: 20150709
  Transmission Date: 20151125
  Serious: Yes (Hospitalization)
  Sender: FDA-Public Use
  Company Number: SE-ROCHE-1605322

PATIENT
  Age: 78 Year
  Sex: Male

DRUGS (16)
  1. FURIX [Concomitant]
     Active Substance: FUROSEMIDE
     Route: 065
  2. LUCENTIS [Suspect]
     Active Substance: RANIBIZUMAB
     Indication: AGE-RELATED MACULAR DEGENERATION
     Dosage: FORM STRENGTH: 10 MG/ML
     Route: 047
     Dates: start: 2011
  3. ATORVASTATIN CALCIUM. [Concomitant]
     Active Substance: ATORVASTATIN CALCIUM
     Route: 065
  4. LUCENTIS [Suspect]
     Active Substance: RANIBIZUMAB
     Dosage: RIGHT EYE, 5 INJECTIONS
     Route: 047
  5. LIVOSTIN EYE DROPS [Concomitant]
     Dosage: 0.5 MG/ML
     Route: 065
  6. LUCENTIS [Suspect]
     Active Substance: RANIBIZUMAB
     Dosage: LEFT EYE, 11 INJECTIONS, MOST RECENT INJECTION: 17/MAR/2015
     Route: 047
  7. SPIRIVA [Concomitant]
     Active Substance: TIOTROPIUM BROMIDE MONOHYDRATE
     Route: 065
  8. LANTUS [Concomitant]
     Active Substance: INSULIN GLARGINE
     Dosage: 100 U/ML
     Route: 065
     Dates: start: 20131219
  9. ENALAPRIL COMP [Concomitant]
     Active Substance: ENALAPRIL MALEATE\HYDROCHLOROTHIAZIDE
     Route: 065
  10. NITROLINGUAL [Concomitant]
     Active Substance: NITROGLYCERIN
     Route: 065
  11. TROMBYL [Concomitant]
     Active Substance: ASPIRIN
     Route: 065
  12. METFORMIN HYDROCHLORIDE. [Concomitant]
     Active Substance: METFORMIN HYDROCHLORIDE
     Dosage: TRADE NAME METFORMIN ACTAVIS
     Route: 065
  13. LIVOSTIN NASAL SPRAY [Concomitant]
     Active Substance: LEVOCABASTINE HYDROCHLORIDE
     Route: 065
  14. CETIRIZINE HYDROCHLORIDE. [Concomitant]
     Active Substance: CETIRIZINE HYDROCHLORIDE
     Route: 065
  15. METOPROLOL SUCCINATE. [Concomitant]
     Active Substance: METOPROLOL SUCCINATE
     Dosage: TRADE NAME: METOPROLOL ORION
     Route: 065
  16. PULMICORT TURBUHALER [Concomitant]
     Active Substance: BUDESONIDE
     Route: 065

REACTIONS (1)
  - Transient ischaemic attack [Recovered/Resolved]

NARRATIVE: CASE EVENT DATE: 20150406
